FAERS Safety Report 9275773 (Version 1)
Quarter: 2013Q2

REPORT INFORMATION
  Report Type: Spontaneous
  Country: US (occurrence: US)
  Receive Date: 20130507
  Receipt Date: 20130507
  Transmission Date: 20140414
  Serious: Yes (Other)
  Sender: FDA-Public Use
  Company Number: US-PFIZER INC-2013138811

PATIENT
  Age: 11 Year
  Sex: Female

DRUGS (1)
  1. QUILLIVANT XR [Suspect]
     Dosage: 20 MG, UNK
     Dates: start: 201304

REACTIONS (4)
  - Syncope [Unknown]
  - Obesity [Unknown]
  - Musculoskeletal discomfort [Unknown]
  - Chest discomfort [Unknown]
